FAERS Safety Report 20981662 (Version 1)
Quarter: 2022Q2

REPORT INFORMATION
  Report Type: Other
  Country: US (occurrence: None)
  Receive Date: 20220620
  Receipt Date: 20220620
  Transmission Date: 20220720
  Serious: No
  Sender: FDA-Public Use
  Company Number: US-ROCHE-3120982

PATIENT
  Sex: Male

DRUGS (1)
  1. OCREVUS [Suspect]
     Active Substance: OCRELIZUMAB
     Indication: Multiple sclerosis
     Dosage: DATE OF TREATMENT: 04/APR/2019, 19/APR/2019, 04/OCT/2019, 20/APR/2020, 06/OCT/2020, 06/APR/2021, 21/
     Route: 042

REACTIONS (1)
  - COVID-19 [Recovered/Resolved]
